FAERS Safety Report 17398370 (Version 1)
Quarter: 2020Q1

REPORT INFORMATION
  Report Type: Spontaneous
  Country: US (occurrence: US)
  Receive Date: 20200210
  Receipt Date: 20200210
  Transmission Date: 20200409
  Serious: No
  Sender: FDA-Public Use
  Company Number: US-VAYAPHARMA-2018-US-010996

PATIENT
  Age: 73 Year
  Sex: Female
  Weight: 63.5 kg

DRUGS (2)
  1. UNSPECIFIED SUPPLEMENTS [Concomitant]
  2. VAYACOG [Suspect]
     Active Substance: DOCONEXENT\ICOSAPENT\PHOSPHATIDYL SERINE
     Indication: LIPID METABOLISM DISORDER
     Dosage: 2 CAPSULES 1ST DAY, 1 CAPSULE DAILY AFTER
     Route: 048
     Dates: start: 20180626, end: 20180628

REACTIONS (3)
  - Pharyngeal swelling [Not Recovered/Not Resolved]
  - Rash [Unknown]
  - Dyspnoea [Unknown]

NARRATIVE: CASE EVENT DATE: 20180628
